FAERS Safety Report 5266775-7 (Version None)
Quarter: 2007Q1

REPORT INFORMATION
  Report Type: 
  Country: None (occurrence: None)
  Receive Date: 20070312
  Receipt Date: 20070307
  Transmission Date: 20070707
  Serious: Yes (Other)
  Sender: FDA-Public Use
  Company Number: SP01064

PATIENT
  Age: 37 Year
  Sex: Female
  Weight: 58.9676 kg

DRUGS (1)
  1. XIFAXAN [Suspect]
     Indication: IRRITABLE BOWEL SYNDROME
     Dosage: (2 IN 1 D), ORAL/2 TO 3 DAYS
     Route: 048
     Dates: start: 20061201

REACTIONS (4)
  - ABORTION SPONTANEOUS [None]
  - INFLUENZA LIKE ILLNESS [None]
  - MENSTRUATION IRREGULAR [None]
  - METRORRHAGIA [None]
